FAERS Safety Report 7800583-5 (Version None)
Quarter: 2011Q4

REPORT INFORMATION
  Report Type: 
  Country: None (occurrence: None)
  Receive Date: 20111006
  Receipt Date: 20110926
  Transmission Date: 20120403
  Serious: Yes (Death)
  Sender: FDA-Public Use
  Company Number: FR-ACTELION-A-CH2011-54585

PATIENT
  Sex: Female

DRUGS (7)
  1. FOSAMAX [Concomitant]
  2. DILTIAZEM HCL [Concomitant]
  3. PANTOPRAZOLE SODIUM [Concomitant]
  4. TRACLEER [Suspect]
     Dosage: 62.5 MG, BID
     Route: 048
     Dates: start: 20090218, end: 20090317
  5. IMURAN [Concomitant]
  6. TRACLEER [Suspect]
     Indication: SKIN ULCER
     Dosage: 125 MG, BID
     Route: 048
     Dates: start: 20090318, end: 20110217
  7. PREDNISONE [Concomitant]

REACTIONS (4)
  - DEATH [None]
  - HEPATIC CIRRHOSIS [None]
  - PULMONARY OEDEMA [None]
  - CORONARY ARTERY DISEASE [None]
